FAERS Safety Report 20939493 (Version 1)
Quarter: 2022Q2

REPORT INFORMATION
  Report Type: Report from Study
  Country: US (occurrence: US)
  Receive Date: 20220609
  Receipt Date: 20220609
  Transmission Date: 20220720
  Serious: Yes (Other)
  Sender: FDA-Public Use
  Company Number: US-ABBVIE-22K-163-4426970-00

PATIENT
  Sex: Male

DRUGS (2)
  1. IMBRUVICA [Suspect]
     Active Substance: IBRUTINIB
     Indication: Marginal zone lymphoma
     Route: 048
  2. IMBRUVICA [Suspect]
     Active Substance: IBRUTINIB
     Route: 048

REACTIONS (7)
  - Arterial angioplasty [Unknown]
  - Hip arthroplasty [Unknown]
  - Arterial stent insertion [Unknown]
  - Foot fracture [Unknown]
  - Full blood count abnormal [Unknown]
  - Asthenia [Unknown]
  - Fatigue [Unknown]
